FAERS Safety Report 6577825-X (Version None)
Quarter: 2010Q1

REPORT INFORMATION
  Report Type: 
  Country: None (occurrence: None)
  Receive Date: 20100211
  Receipt Date: 20100129
  Transmission Date: 20100710
  Serious: Yes (Disabling)
  Sender: FDA-Public Use
  Company Number: US-ELI_LILLY_AND_COMPANY-US201002001580

PATIENT
  Sex: Female

DRUGS (5)
  1. FORTEO [Suspect]
     Indication: OSTEOPOROSIS
     Dosage: 20 UG, DAILY (1/D)
  2. FORTEO [Suspect]
     Dosage: 20 UG, DAILY (1/D)
  3. ZOCOR [Concomitant]
     Indication: BLOOD CHOLESTEROL
  4. SYNTHROID [Concomitant]
  5. ESGIC-PLUS [Concomitant]
     Indication: HEADACHE

REACTIONS (7)
  - BLINDNESS UNILATERAL [None]
  - FEELING JITTERY [None]
  - MOBILITY DECREASED [None]
  - NAUSEA [None]
  - OFF LABEL USE [None]
  - OSTEOPOROSIS [None]
  - OXYGEN SUPPLEMENTATION [None]
